FAERS Safety Report 19745209 (Version 1)
Quarter: 2021Q3

REPORT INFORMATION
  Report Type: Spontaneous
  Country: GB (occurrence: GB)
  Receive Date: 20210825
  Receipt Date: 20210825
  Transmission Date: 20211014
  Serious: Yes (Other)
  Sender: FDA-Public Use
  Company Number: GB-PFIZER INC-202101028646

PATIENT
  Age: 64 Year
  Sex: Male

DRUGS (6)
  1. RITUXIMAB. [Suspect]
     Active Substance: RITUXIMAB
     Indication: DIFFUSE LARGE B-CELL LYMPHOMA RECURRENT
     Dosage: DAY 1
     Route: 042
     Dates: start: 201808
  2. ETOPOSIDE. [Suspect]
     Active Substance: ETOPOSIDE
     Indication: DIFFUSE LARGE B-CELL LYMPHOMA RECURRENT
     Dosage: DAY 1
     Route: 042
  3. VINCRISTINE SULFATE. [Suspect]
     Active Substance: VINCRISTINE SULFATE
     Indication: DIFFUSE LARGE B-CELL LYMPHOMA RECURRENT
     Dosage: 1.4 MG/M2
     Route: 042
     Dates: start: 201808
  4. ETOPOSIDE. [Suspect]
     Active Substance: ETOPOSIDE
     Dosage: DAY 2 AND 3
     Route: 048
     Dates: start: 201808
  5. CYCLOPHOSPHAMIDE. [Suspect]
     Active Substance: CYCLOPHOSPHAMIDE
     Indication: DIFFUSE LARGE B-CELL LYMPHOMA RECURRENT
     Dosage: DAY 1
     Route: 042
  6. PREDNISOLONE. [Suspect]
     Active Substance: PREDNISOLONE
     Indication: DIFFUSE LARGE B-CELL LYMPHOMA RECURRENT
     Dosage: DAY 1?5
     Route: 048

REACTIONS (3)
  - Necrotic lymphadenopathy [Not Recovered/Not Resolved]
  - Cardiac dysfunction [Unknown]
  - Neoplasm progression [Not Recovered/Not Resolved]
